FAERS Safety Report 19372857 (Version 3)
Quarter: 2023Q4

REPORT INFORMATION
  Report Type: Spontaneous
  Country: US (occurrence: US)
  Receive Date: 20210603
  Receipt Date: 20231026
  Transmission Date: 20240110
  Serious: Yes (Other)
  Sender: FDA-Public Use
  Company Number: US-GILEAD-2021-0534105

PATIENT
  Age: 59 Year
  Sex: Male
  Weight: 104.76 kg

DRUGS (49)
  1. ATRIPLA [Suspect]
     Active Substance: EFAVIRENZ\EMTRICITABINE\TENOFOVIR DISOPROXIL FUMARATE
     Indication: HIV infection
     Dosage: UNK
     Route: 048
     Dates: start: 2010
  2. ATRIPLA [Suspect]
     Active Substance: EFAVIRENZ\EMTRICITABINE\TENOFOVIR DISOPROXIL FUMARATE
     Dosage: UNK
     Route: 048
     Dates: start: 20100825, end: 20160226
  3. BIKTARVY [Concomitant]
     Active Substance: BICTEGRAVIR SODIUM\EMTRICITABINE\TENOFOVIR ALAFENAMIDE FUMARATE
  4. TRIUMEQ [Concomitant]
     Active Substance: ABACAVIR SULFATE\DOLUTEGRAVIR SODIUM\LAMIVUDINE
  5. ACETAMINOPHEN [Concomitant]
     Active Substance: ACETAMINOPHEN
  6. ALBUTEROL [Concomitant]
     Active Substance: ALBUTEROL
  7. AMOXICILLIN\CLAVULANATE POTASSIUM [Concomitant]
     Active Substance: AMOXICILLIN\CLAVULANATE POTASSIUM
  8. ATORVASTATIN [Concomitant]
     Active Substance: ATORVASTATIN
  9. BENZONATATE [Concomitant]
     Active Substance: BENZONATATE
  10. BETAMETHASONE [Concomitant]
     Active Substance: BETAMETHASONE
  11. CALCIUM [Concomitant]
     Active Substance: CALCIUM
  12. CEFDINIR [Concomitant]
     Active Substance: CEFDINIR
  13. CEFUROXIME [Concomitant]
     Active Substance: CEFUROXIME
  14. CHANTIX [Concomitant]
     Active Substance: VARENICLINE TARTRATE
  15. CIALIS [Concomitant]
     Active Substance: TADALAFIL
  16. CYCLOBENZAPRINE [Concomitant]
     Active Substance: CYCLOBENZAPRINE
  17. DOVATO [Concomitant]
     Active Substance: DOLUTEGRAVIR SODIUM\LAMIVUDINE
  18. ERYTHROMYCIN [Concomitant]
     Active Substance: ERYTHROMYCIN
  19. FENOFIBRATE [Concomitant]
     Active Substance: FENOFIBRATE
  20. FINASTERIDE [Concomitant]
     Active Substance: FINASTERIDE
  21. FLUTICASONE [Concomitant]
     Active Substance: FLUTICASONE
  22. GABAPENTIN [Concomitant]
     Active Substance: GABAPENTIN
  23. GAVILYTE - C [Concomitant]
     Active Substance: POLYETHYLENE GLYCOL 3350\POTASSIUM CHLORIDE\SODIUM BICARBONATE\SODIUM CHLORIDE\SODIUM SULFATE
  24. HYDROCHLOROTHIAZIDE [Concomitant]
     Active Substance: HYDROCHLOROTHIAZIDE
  25. HYDROCODONE [Concomitant]
     Active Substance: HYDROCODONE
  26. HYDROXYZINE [Concomitant]
     Active Substance: HYDROXYZINE HYDROCHLORIDE
  27. INCRUSE ELLIPTA [Concomitant]
     Active Substance: UMECLIDINIUM BROMIDE
  28. IPRATROPIUM BROMIDE AND ALBUTEROL SULFATE [Concomitant]
     Active Substance: ALBUTEROL SULFATE\IPRATROPIUM BROMIDE
  29. LEVOFLOXACIN [Concomitant]
     Active Substance: LEVOFLOXACIN
  30. LIPITOR [Concomitant]
     Active Substance: ATORVASTATIN CALCIUM
  31. LORAZEPAM [Concomitant]
     Active Substance: LORAZEPAM
  32. MELOXICAM [Concomitant]
     Active Substance: MELOXICAM
  33. METOPROLOL [Concomitant]
     Active Substance: METOPROLOL
  34. NOCOTINE [Concomitant]
  35. OMEPRAZOLE [Concomitant]
     Active Substance: OMEPRAZOLE
  36. ONDANSETRON [Concomitant]
     Active Substance: ONDANSETRON
  37. OSELTAMIVIR [Concomitant]
     Active Substance: OSELTAMIVIR
  38. PREDNISONE [Concomitant]
     Active Substance: PREDNISONE
  39. PROAIR HFA [Concomitant]
     Active Substance: ALBUTEROL SULFATE
  40. PROPOXYPHENE [Concomitant]
     Active Substance: PROPOXYPHENE
  41. MULTIVITAL ENERGY [Concomitant]
  42. VITAMIN D NOS [Concomitant]
     Active Substance: VITAMIN D NOS
  43. RESTASIS [Concomitant]
     Active Substance: CYCLOSPORINE
  44. SPIRIVA [Concomitant]
     Active Substance: TIOTROPIUM BROMIDE MONOHYDRATE
  45. SYMBICORT [Concomitant]
     Active Substance: BUDESONIDE\FORMOTEROL FUMARATE DIHYDRATE
  46. TRAZODONE [Concomitant]
     Active Substance: TRAZODONE HYDROCHLORIDE
  47. TRICOR [Concomitant]
     Active Substance: FENOFIBRATE
  48. VENTOLIN [Concomitant]
     Active Substance: ALBUTEROL SULFATE
  49. VITAMIN D2 [Concomitant]
     Active Substance: ERGOCALCIFEROL

REACTIONS (9)
  - Chronic kidney disease [Not Recovered/Not Resolved]
  - Emotional distress [Not Recovered/Not Resolved]
  - Anhedonia [Not Recovered/Not Resolved]
  - Anxiety [Not Recovered/Not Resolved]
  - Pain [Not Recovered/Not Resolved]
  - Osteopenia [Not Recovered/Not Resolved]
  - Asthenia [Not Recovered/Not Resolved]
  - Back pain [Unknown]
  - Fatigue [Not Recovered/Not Resolved]

NARRATIVE: CASE EVENT DATE: 20171023
